FAERS Safety Report 11151540 (Version 2)
Quarter: 2015Q2

REPORT INFORMATION
  Report Type: Spontaneous
  Country: US (occurrence: US)
  Receive Date: 20150601
  Receipt Date: 20150613
  Transmission Date: 20150821
  Serious: Yes (Hospitalization, Other)
  Sender: FDA-Public Use
  Company Number: US-BIOGENIDEC-2015BI073762

PATIENT
  Sex: Female

DRUGS (1)
  1. TECFIDERA [Suspect]
     Active Substance: DIMETHYL FUMARATE
     Indication: MULTIPLE SCLEROSIS

REACTIONS (8)
  - White blood cell count abnormal [Unknown]
  - Hypotension [Unknown]
  - Malaise [Unknown]
  - Fall [Recovered/Resolved]
  - Vein disorder [Unknown]
  - Pulmonary thrombosis [Unknown]
  - Diabetes mellitus [Unknown]
  - Paralysis [Unknown]
